FAERS Safety Report 6244808-9 (Version None)
Quarter: 2009Q2

REPORT INFORMATION
  Report Type: 
  Country: None (occurrence: None)
  Receive Date: 20090619
  Receipt Date: 20090421
  Transmission Date: 20091009
  Serious: No
  Sender: FDA-Public Use
  Company Number: ALL1-2009-01056

PATIENT
  Age: 31 Year
  Sex: Male
  Weight: 99.8 kg

DRUGS (4)
  1. VYVANSE [Suspect]
     Indication: ATTENTION DEFICIT/HYPERACTIVITY DISORDER
     Dosage: 50 MG, 1X/DAY:QD, ORAL : 70 MG, 1X/DAY:QD, ORAL
     Route: 048
     Dates: start: 20090201, end: 20090301
  2. VYVANSE [Suspect]
     Indication: ATTENTION DEFICIT/HYPERACTIVITY DISORDER
     Dosage: 50 MG, 1X/DAY:QD, ORAL : 70 MG, 1X/DAY:QD, ORAL
     Route: 048
     Dates: start: 20090301
  3. LEXAPRO [Concomitant]
  4. LAMICTAL [Concomitant]

REACTIONS (1)
  - SKIN ODOUR ABNORMAL [None]
